FAERS Safety Report 17565480 (Version 3)
Quarter: 2021Q3

REPORT INFORMATION
  Report Type: Spontaneous
  Country: US (occurrence: US)
  Receive Date: 20200320
  Receipt Date: 20210813
  Transmission Date: 20211014
  Serious: No
  Sender: FDA-Public Use
  Company Number: US-VERTEX PHARMACEUTICALS-2020-000495

PATIENT
  Age: 40 Year
  Sex: Male

DRUGS (5)
  1. TRIKAFTA [Suspect]
     Active Substance: ELEXACAFTOR\IVACAFTOR\TEZACAFTOR
     Indication: CYSTIC FIBROSIS
     Dosage: 2 TABS (100MG ELEXACAFTOR/ 50 MG TEZACAFTOR/ 75 MG IVACAFTOR) AM; 1 TAB (150 MG IVACAFTOR) PM
     Route: 048
     Dates: start: 20191212, end: 20200220
  2. XOLAIR [Concomitant]
     Active Substance: OMALIZUMAB
     Indication: BLOOD IMMUNOGLOBULIN E INCREASED
  3. PULMOZYME [Concomitant]
     Active Substance: DORNASE ALFA
  4. CAYSTON [Concomitant]
     Active Substance: AZTREONAM
  5. TRIKAFTA [Suspect]
     Active Substance: ELEXACAFTOR\IVACAFTOR\TEZACAFTOR
     Dosage: REDUCED DOSE, ONE AM DOSE
     Route: 048
     Dates: start: 20210524, end: 20210712

REACTIONS (2)
  - Allergy test negative [Unknown]
  - Drug eruption [Unknown]

NARRATIVE: CASE EVENT DATE: 20191228
